FAERS Safety Report 4513503-6 (Version None)
Quarter: 2004Q4

REPORT INFORMATION
  Report Type: 
  Country: None (occurrence: None)
  Receive Date: 20041124
  Receipt Date: 20040920
  Transmission Date: 20050328
  Serious: Yes (Hospitalization)
  Sender: FDA-Public Use
  Company Number: A02200403349

PATIENT
  Age: 73 Year
  Sex: Male

DRUGS (5)
  1. PLAVIX [Suspect]
     Dosage: 75 MG OD, ORAL
     Route: 048
     Dates: start: 20030201, end: 20040926
  2. EQUANIL [Suspect]
     Dosage: 400 MG OD, ORAL
     Route: 048
     Dates: start: 20030201, end: 20040924
  3. TRANXENE [Suspect]
     Dosage: 10 MG OD, ORAL
     Route: 048
     Dates: start: 20040201, end: 20040924
  4. ATHYMIL - (MIANSERIN HYDROCHLORIDE) - TABLET - 30 MG [Suspect]
     Dosage: 30 MG OD, ORAL
     Route: 048
     Dates: start: 20040201, end: 20040924
  5. SEROPRAM - (CITALOPRAM HYDROBROMIDE) - TABLET - 20 MG [Suspect]
     Dosage: 20 MG OD, ORAL
     Route: 048
     Dates: start: 20031201, end: 20040925

REACTIONS (4)
  - FALL [None]
  - HAEMORRHAGE [None]
  - HEAD INJURY [None]
  - MALAISE [None]
